FAERS Safety Report 4587457-0 (Version None)
Quarter: 2005Q1

REPORT INFORMATION
  Report Type: 
  Country: None (occurrence: None)
  Receive Date: 20050215
  Receipt Date: 20050207
  Transmission Date: 20050727
  Serious: Yes (Hospitalization, Other)
  Sender: FDA-Public Use
  Company Number: 2004226937ES

PATIENT
  Age: 63 Year
  Sex: Female
  Weight: 56 kg

DRUGS (1)
  1. SOMAVERT [Suspect]
     Indication: ACROMEGALY
     Dosage: 10 MG (10 MG, 1 IN 1 D), SUBCUTANEOUS
     Route: 058
     Dates: start: 20040610, end: 20040710

REACTIONS (2)
  - HEADACHE [None]
  - PITUITARY TUMOUR RECURRENT [None]
